FAERS Safety Report 21180595 (Version 1)
Quarter: 2022Q3

REPORT INFORMATION
  Report Type: Spontaneous
  Country: US (occurrence: US)
  Receive Date: 20220806
  Receipt Date: 20220806
  Transmission Date: 20221027
  Serious: No
  Sender: FDA-Public Use
  Company Number: US-SA-SAC20220727001992

PATIENT
  Age: 43 Year
  Sex: Female

DRUGS (2)
  1. DUPIXENT [Suspect]
     Active Substance: DUPILUMAB
     Indication: Asthma
     Dosage: 300 MG/2ML, QOW
     Route: 058
     Dates: start: 20200207
  2. ALBUTEROL [Concomitant]
     Active Substance: ALBUTEROL
     Dosage: 0.6MG/3

REACTIONS (3)
  - Asthma [Not Recovered/Not Resolved]
  - Impaired quality of life [Unknown]
  - Therapeutic response shortened [Unknown]
